FAERS Safety Report 14448966 (Version 1)
Quarter: 2018Q1

REPORT INFORMATION
  Report Type: Spontaneous
  Country: GR (occurrence: GR)
  Receive Date: 20180126
  Receipt Date: 20180126
  Transmission Date: 20180509
  Serious: Yes (Hospitalization, Other)
  Sender: FDA-Public Use
  Company Number: GR-OTSUKA-DJ20123260

PATIENT

DRUGS (3)
  1. VALDOXAN [Concomitant]
     Active Substance: AGOMELATINE
     Route: 065
     Dates: start: 201201, end: 201206
  2. DEPAKINE [Concomitant]
     Active Substance: VALPROATE SODIUM
     Route: 065
  3. ABILIFY [Suspect]
     Active Substance: ARIPIPRAZOLE
     Indication: BIPOLAR DISORDER
     Route: 048
     Dates: start: 201201

REACTIONS (1)
  - Ischaemic stroke [Recovered/Resolved]

NARRATIVE: CASE EVENT DATE: 201108
